FAERS Safety Report 13158305 (Version 2)
Quarter: 2017Q1

REPORT INFORMATION
  Report Type: Spontaneous
  Country: FR (occurrence: FR)
  Receive Date: 20170127
  Receipt Date: 20170213
  Transmission Date: 20170428
  Serious: Yes (Hospitalization)
  Sender: FDA-Public Use
  Company Number: FR-PFIZER INC-2017027649

PATIENT
  Age: 60 Year
  Sex: Female

DRUGS (6)
  1. AFINITOR [Suspect]
     Active Substance: EVEROLIMUS
     Indication: BREAST CANCER METASTATIC
     Dosage: 10 MG, 1X/DAY
     Route: 048
     Dates: start: 20150225, end: 20160926
  2. AFINITOR [Suspect]
     Active Substance: EVEROLIMUS
     Dosage: UNK, 1X/DAY
     Route: 048
     Dates: start: 20161010
  3. AROMASINE [Suspect]
     Active Substance: EXEMESTANE
     Indication: BREAST CANCER METASTATIC
     Dosage: 25 MG, 1X/DAY
     Route: 048
     Dates: start: 20150225, end: 20160926
  4. TRAMADOL BASE [Concomitant]
     Active Substance: TRAMADOL
     Dosage: UNK, 3X/DAY
     Route: 048
  5. PARACETAMOL [Concomitant]
     Active Substance: ACETAMINOPHEN
     Route: 048
  6. AROMASINE [Suspect]
     Active Substance: EXEMESTANE
     Dosage: UNK, 1X/DAY
     Route: 048
     Dates: start: 20160927

REACTIONS (1)
  - Cholecystitis [Recovered/Resolved with Sequelae]

NARRATIVE: CASE EVENT DATE: 20160923
